FAERS Safety Report 25267208 (Version 1)
Quarter: 2025Q2

REPORT INFORMATION
  Report Type: Spontaneous
  Country: MA (occurrence: MA)
  Receive Date: 20250505
  Receipt Date: 20250505
  Transmission Date: 20250716
  Serious: Yes (Death, Other)
  Sender: SOLARIS PHARMA CORPORATION
  Company Number: MA-SPC-000611

PATIENT
  Age: 21 Year
  Sex: Male

DRUGS (2)
  1. METRONIDAZOLE [Suspect]
     Active Substance: METRONIDAZOLE
     Indication: Myiasis
     Route: 042
  2. CHLORHEXIDINE [Suspect]
     Active Substance: CHLORHEXIDINE
     Indication: Myiasis
     Route: 065

REACTIONS (3)
  - Drug effective for unapproved indication [Unknown]
  - Respiratory tract infection [Fatal]
  - Septic shock [Fatal]
